FAERS Safety Report 6422532-7 (Version None)
Quarter: 2009Q4

REPORT INFORMATION
  Report Type: 
  Country: None (occurrence: None)
  Receive Date: 20091102
  Receipt Date: 20091021
  Transmission Date: 20100525
  Serious: Yes (Death)
  Sender: FDA-Public Use
  Company Number: SE-BIOGENIDEC-2009BI033745

PATIENT
  Age: 47 Year
  Sex: Male

DRUGS (7)
  1. TYSABRI [Suspect]
     Indication: MULTIPLE SCLEROSIS
     Route: 042
     Dates: start: 20080801
  2. VIAGRA [Concomitant]
  3. SELOKEN ZOC [Concomitant]
     Route: 048
  4. VESICARE [Concomitant]
     Route: 048
  5. AMLODIPINE [Concomitant]
     Route: 048
  6. BACLOFEN [Concomitant]
     Route: 048
  7. UNSPECIFIED MEDICATION [Concomitant]
     Indication: HYPERTENSION

REACTIONS (5)
  - CARDIAC ARREST [None]
  - CHEST PAIN [None]
  - DYSPNOEA [None]
  - VENTRICULAR FIBRILLATION [None]
  - VOMITING [None]
